FAERS Safety Report 8843823 (Version 1)
Quarter: 2012Q4

REPORT INFORMATION
  Report Type: 
  Country: NL (occurrence: NL)
  Receive Date: 20121016
  Receipt Date: 20121016
  Transmission Date: 20130627
  Serious: Yes (Hospitalization)
  Sender: FDA-Public Use
  Company Number: NL-PFIZER INC-2012251629

PATIENT
  Age: 22 Year
  Sex: Male
  Weight: 92 kg

DRUGS (5)
  1. GENOTROPIN [Suspect]
     Indication: HYPOPITUITARISM
     Dosage: 0.8 mg, 7/wk
     Route: 058
     Dates: start: 20031103
  2. LEVOTHYROXINE [Concomitant]
     Indication: BLOOD THYROID STIMULATING HORMONE DECREASED
     Dosage: UNK
     Dates: start: 19880802
  3. CORTISONE ACETATE [Concomitant]
     Indication: BLOOD CORTICOTROPHIN DECREASED
     Dosage: UNK
     Dates: start: 19941129
  4. PREGNYL [Concomitant]
     Indication: BLOOD LUTEINISING HORMONE DECREASED
     Dosage: UNK
     Dates: start: 19981120
  5. PREGNYL [Concomitant]
     Indication: BLOOD FOLLICLE STIMULATING HORMONE DECREASED

REACTIONS (1)
  - Upper limb fracture [Unknown]
